FAERS Safety Report 5992970-5 (Version None)
Quarter: 2008Q4

REPORT INFORMATION
  Report Type: 
  Country: None (occurrence: None)
  Receive Date: 20081210
  Receipt Date: 20081210
  Transmission Date: 20090506
  Serious: Yes (Hospitalization)
  Sender: FDA-Public Use
  Company Number: None

PATIENT
  Age: 50 Year
  Sex: Male
  Weight: 117.5 kg

DRUGS (1)
  1. CISPLATIN [Suspect]
     Indication: NEOPLASM MALIGNANT
     Dosage: 170 MG ONCE IV
     Route: 042
     Dates: start: 20081114, end: 20081114

REACTIONS (3)
  - NEPHROPATHY TOXIC [None]
  - PNEUMATOSIS INTESTINALIS [None]
  - RENAL FAILURE ACUTE [None]
